FAERS Safety Report 24253531 (Version 1)
Quarter: 2024Q3

REPORT INFORMATION
  Report Type: Spontaneous
  Country: CN (occurrence: CN)
  Receive Date: 20240827
  Receipt Date: 20240827
  Transmission Date: 20241017
  Serious: Yes (Other)
  Sender: ROCHE
  Company Number: CN-ROCHE-10000065487

PATIENT
  Age: 40 Year
  Sex: Male
  Weight: 75 kg

DRUGS (4)
  1. RITUXIMAB [Suspect]
     Active Substance: RITUXIMAB
     Indication: Diffuse large B-cell lymphoma
     Route: 050
     Dates: start: 20240801, end: 20240801
  2. OXYGEN [Concomitant]
     Active Substance: OXYGEN
     Dosage: INHALATION
  3. DEXAMETHASONE [Concomitant]
     Active Substance: DEXAMETHASONE
  4. promethazine. [Concomitant]
     Route: 030

REACTIONS (4)
  - Palpitations [Recovering/Resolving]
  - Chest discomfort [Recovering/Resolving]
  - Dyspnoea [Recovering/Resolving]
  - Cardiac fibrillation [Recovering/Resolving]

NARRATIVE: CASE EVENT DATE: 20240801
